FAERS Safety Report 14935151 (Version 1)
Quarter: 2018Q2

REPORT INFORMATION
  Report Type: Spontaneous
  Country: US (occurrence: US)
  Receive Date: 20180506
  Receipt Date: 20180506
  Transmission Date: 20180711
  Serious: No
  Sender: FDA-Public Use
  Company Number: None

PATIENT
  Age: 44 Year
  Sex: Male
  Weight: 85.5 kg

DRUGS (1)
  1. METHYLPREDNISONE [Suspect]
     Active Substance: METHYLPREDNISOLONE
     Indication: INFLAMMATION
     Dosage: ?          QUANTITY:21 TABLET(S);OTHER FREQUENCY:AFTER MEALS;?
     Route: 048
     Dates: start: 20180326, end: 20180401

REACTIONS (3)
  - Migraine [None]
  - Motion sickness [None]
  - Nausea [None]

NARRATIVE: CASE EVENT DATE: 20180401
